FAERS Safety Report 22615752 (Version 1)
Quarter: 2023Q2

REPORT INFORMATION
  Report Type: Other
  Country: AU (occurrence: None)
  Receive Date: 20230619
  Receipt Date: 20230619
  Transmission Date: 20230721
  Serious: Yes (Other)
  Sender: FDA-Public Use
  Company Number: AU-ROCHE-3368658

PATIENT

DRUGS (3)
  1. BEVACIZUMAB [Suspect]
     Active Substance: BEVACIZUMAB
     Indication: Retinal vein occlusion
     Route: 042
  2. RANIBIZUMAB [Suspect]
     Active Substance: RANIBIZUMAB
     Indication: Retinal vein occlusion
     Route: 065
  3. AFLIBERCEPT [Suspect]
     Active Substance: AFLIBERCEPT
     Indication: Retinal vein occlusion
     Route: 065

REACTIONS (9)
  - Endophthalmitis [Unknown]
  - Non-infectious endophthalmitis [Unknown]
  - Retinal detachment [Unknown]
  - Off label use [Unknown]
  - Epiretinal membrane [Unknown]
  - Macular hole [Unknown]
  - Pigmentation disorder [Unknown]
  - Atrophy [Unknown]
  - Glaucoma [Unknown]
